FAERS Safety Report 10408470 (Version 3)
Quarter: 2015Q1

REPORT INFORMATION
  Report Type: Spontaneous
  Country: GB (occurrence: GB)
  Receive Date: 20140826
  Receipt Date: 20150331
  Transmission Date: 20150720
  Serious: Yes (Hospitalization, Other)
  Sender: FDA-Public Use
  Company Number: GB-PERRIGO-14GB008185

PATIENT
  Weight: 2.55 kg

DRUGS (6)
  1. ENOXAPARIN [Concomitant]
     Active Substance: ENOXAPARIN
     Indication: PRODUCT USED FOR UNKNOWN INDICATION
     Route: 064
  2. CEFRADINE [Concomitant]
     Active Substance: CEPHRADINE
     Indication: PYELONEPHRITIS
     Route: 064
  3. FLUOXETINE [Concomitant]
     Active Substance: FLUOXETINE\FLUOXETINE HYDROCHLORIDE
     Indication: PRODUCT USED FOR UNKNOWN INDICATION
     Route: 064
  4. METRONIDAZOLE. [Concomitant]
     Active Substance: METRONIDAZOLE
     Indication: PYELONEPHRITIS
     Route: 064
  5. ACETAMINOPHEN 650MG ER 544 [Suspect]
     Active Substance: ACETAMINOPHEN
     Indication: FOETAL EXPOSURE DURING PREGNANCY
     Dosage: UNK
     Route: 064
  6. COCODAMOL [Suspect]
     Active Substance: ACETAMINOPHEN\CODEINE PHOSPHATE
     Indication: FOETAL EXPOSURE DURING PREGNANCY
     Dosage: UNK
     Route: 064

REACTIONS (16)
  - Premature baby [Unknown]
  - Tremor [Unknown]
  - Jaundice [Recovered/Resolved]
  - Aphasia [Unknown]
  - Neonatal respiratory distress syndrome [Recovered/Resolved]
  - Foetal exposure during pregnancy [Recovered/Resolved]
  - Heart rate irregular [Recovered/Resolved]
  - Hepatic function abnormal [Recovered/Resolved]
  - Hepatic enzyme increased [Recovered/Resolved]
  - Dependence [Recovered/Resolved]
  - Abasia [Unknown]
  - Malaise [Unknown]
  - Incubator therapy [Unknown]
  - Developmental delay [Unknown]
  - Overdose [Unknown]
  - Hepatotoxicity [Recovered/Resolved]
